FAERS Safety Report 8344386 (Version 2)
Quarter: 2013Q4

REPORT INFORMATION
  Report Type: Spontaneous
  Country: US (occurrence: None)
  Receive Date: 20120105
  Receipt Date: 20131114
  Transmission Date: 20140711
  Serious: Yes (Other)
  Sender: FDA-Public Use
  Company Number: 2011030635

PATIENT
  Age: 65 Year
  Sex: Female
  Weight: 61.24 kg

DRUGS (24)
  1. HIZENTRA [Suspect]
     Indication: IMMUNODEFICIENCY COMMON VARIABLE
     Dosage: 12 G 1X/WEEK, 60 ML ON FOUR TO FIVE SITES OVER ONE HOUR SUBCUTANEOUS
     Route: 058
     Dates: start: 20111220
  2. ACETAMINOPHEN (PARACETAMOL) [Concomitant]
  3. METHOTREXATE (METHOREXAE) [Concomitant]
  4. CHLORDIAZEPOAMITRIPTYL (CHLORDIAZEPOXIDE W/AMITRIPTYLINE) [Concomitant]
  5. VERAPAMIL HYDROCHLORIDE [Concomitant]
  6. FOLIC ACID [Concomitant]
  7. FIORINAL/CODEINE (FIORINAL-C 1/4 /00141301/) [Concomitant]
  8. MELOXICAM [Concomitant]
  9. VITAMINS [Concomitant]
  10. MULTIVITAMIN (MULTIVITAMIN/00831701/) [Concomitant]
  11. LORTAB (LORTAB/01744401/) [Concomitant]
  12. SIMIVASTATIN (SIMVASTATIN) [Concomitant]
  13. FLUCONAZOLE (FLUCONAZOLE) [Concomitant]
  14. CIPRO (CIPROFLOXACIN) [Concomitant]
  15. DIPHENHYDRAMINE (DIPHENHYDRAMINE) [Concomitant]
  16. LIDOCAINE (LIDOCAINE) [Concomitant]
  17. PRILOCAINE (LRIOCAINE) [Concomitant]
  18. EPIPEN (EPINEPHRINE) [Concomitant]
  19. LITHIUM (LITHIUM) [Concomitant]
  20. CELEXA (CITALOPRAM HYDROBROMIDE) [Concomitant]
  21. DEPAKOTE (VALPROATE SEMISODIUM) [Concomitant]
  22. RISPERIDONE (RISPERIDONE) [Suspect]
  23. CHLORDIAZEPOXIDE (CHLORDIAZEPOXIDE) (CHLORDIAZEPOXIDE) [Concomitant]
  24. LEVOTHYROXINE (LEVOTHYROXINE) [Concomitant]

REACTIONS (7)
  - Headache [None]
  - Malaise [None]
  - Abdominal pain [None]
  - Bone pain [None]
  - Migraine [None]
  - Arthritis [None]
  - Vertigo [None]
